FAERS Safety Report 5764256-5 (Version None)
Quarter: 2008Q2

REPORT INFORMATION
  Report Type: 
  Country: None (occurrence: None)
  Receive Date: 20080604
  Receipt Date: 20080521
  Transmission Date: 20081010
  Serious: Yes (Death)
  Sender: FDA-Public Use
  Company Number: 2008AL005616

PATIENT
  Age: 80 Year
  Sex: Male
  Weight: 81.1939 kg

DRUGS (1)
  1. DIGOXIN [Suspect]
     Indication: CARDIAC FAILURE CONGESTIVE
     Dosage: 0.25 MG, DAILY PO
     Route: 048
     Dates: start: 20060101

REACTIONS (3)
  - ASTHENIA [None]
  - DIZZINESS [None]
  - NAUSEA [None]
